FAERS Safety Report 23704604 (Version 1)
Quarter: 2024Q2

REPORT INFORMATION
  Report Type: Spontaneous
  Country: RU (occurrence: None)
  Receive Date: 20240404
  Receipt Date: 20240404
  Transmission Date: 20240715
  Serious: Yes (Other)
  Sender: FDA-Public Use
  Company Number: RU-ROCHE-3533461

PATIENT
  Age: 38 Year
  Sex: Female

DRUGS (11)
  1. TRASTUZUMAB [Suspect]
     Active Substance: TRASTUZUMAB
     Indication: HER2 positive breast cancer
     Route: 065
     Dates: start: 20130424, end: 20140506
  2. TRASTUZUMAB [Suspect]
     Active Substance: TRASTUZUMAB
     Dosage: 6 CYCLE
     Route: 065
     Dates: start: 202112, end: 202204
  3. TRASTUZUMAB [Suspect]
     Active Substance: TRASTUZUMAB
     Route: 065
     Dates: start: 20220803
  4. ADO-TRASTUZUMAB EMTANSINE [Suspect]
     Active Substance: ADO-TRASTUZUMAB EMTANSINE
     Indication: HER2 positive breast cancer
     Dosage: INTERCYCLE INTERVAL OF 21 DAYS
     Route: 065
     Dates: start: 20221004
  5. PERTUZUMAB [Suspect]
     Active Substance: PERTUZUMAB
     Indication: HER2 positive breast cancer
     Dosage: 6 CYCLES
     Route: 065
     Dates: start: 202112, end: 202204
  6. ANASTROZOLE [Suspect]
     Active Substance: ANASTROZOLE
     Indication: HER2 positive breast cancer
     Route: 065
     Dates: start: 2015, end: 202112
  7. ANASTROZOLE [Suspect]
     Active Substance: ANASTROZOLE
     Route: 065
     Dates: start: 20220803
  8. DENOSUMAB [Suspect]
     Active Substance: DENOSUMAB
     Indication: HER2 positive breast cancer
     Dosage: 6 CYCLES
     Route: 065
     Dates: start: 202112, end: 202204
  9. DENOSUMAB [Suspect]
     Active Substance: DENOSUMAB
     Route: 065
     Dates: start: 20221004
  10. LAPATINIB [Suspect]
     Active Substance: LAPATINIB
     Indication: HER2 positive breast cancer
     Route: 048
     Dates: start: 20220803
  11. DOCETAXEL [Suspect]
     Active Substance: DOCETAXEL\DOCETAXEL ANHYDROUS
     Indication: HER2 positive breast cancer
     Route: 065
     Dates: start: 202112, end: 202204

REACTIONS (5)
  - Gastrointestinal toxicity [Unknown]
  - Disease progression [Unknown]
  - Asthenia [Unknown]
  - Dyspnoea [Unknown]
  - Transaminases increased [Unknown]

NARRATIVE: CASE EVENT DATE: 20210901
